FAERS Safety Report 17936425 (Version 1)
Quarter: 2020Q2

REPORT INFORMATION
  Report Type: Spontaneous
  Country: US (occurrence: US)
  Receive Date: 20200624
  Receipt Date: 20200624
  Transmission Date: 20200714
  Serious: Yes (Death, Hospitalization)
  Sender: FDA-Public Use
  Company Number: None

PATIENT
  Age: 49 Year
  Sex: Male
  Weight: 110.6 kg

DRUGS (19)
  1. DEXAMETHASONE. [Concomitant]
     Active Substance: DEXAMETHASONE
     Dates: start: 20200525
  2. CORTEF [Concomitant]
     Active Substance: HYDROCORTISONE
     Dates: start: 20200529
  3. IOPAMIDOL (ISOVUE-300) [Concomitant]
     Active Substance: IOPAMIDOL
     Dates: start: 20200606
  4. VERSED [Concomitant]
     Active Substance: MIDAZOLAM HYDROCHLORIDE
     Dates: start: 20200608
  5. FUROSEMIDE (LASIX) INJECTION [Concomitant]
     Dates: start: 20200527
  6. YESCARTA [Suspect]
     Active Substance: AXICABTAGENE CILOLEUCEL
     Indication: DIFFUSE LARGE B-CELL LYMPHOMA
     Dosage: ?          OTHER FREQUENCY:ONCE;?
     Route: 042
     Dates: start: 20200520, end: 20200520
  7. ACYCLOVIR (ZOVIRAX) [Concomitant]
     Dates: start: 20200525
  8. ACTEMRA [Concomitant]
     Active Substance: TOCILIZUMAB
     Dates: start: 20200523
  9. IODIXANOL (VISIPAQUE) [Concomitant]
     Dates: start: 20200608
  10. FENTANYL (PF) (SUBLIMAZE) INJECTION [Concomitant]
     Dates: start: 20200608
  11. ELIQUIS [Concomitant]
     Active Substance: APIXABAN
     Dates: start: 20200520
  12. KEPPRA [Concomitant]
     Active Substance: LEVETIRACETAM
     Dates: start: 20200525
  13. TECHNETIUM TC99M MEBROFENIN [Concomitant]
     Active Substance: TECHNETIUM TC-99M MEBROFENIN
     Dates: start: 20200607
  14. GADOBENATE DIMEGLUMINE [Concomitant]
     Active Substance: GADOBENATE DIMEGLUMINE
     Dates: start: 20200608
  15. MICAFUNGIN (MYCAMINE) [Concomitant]
     Dates: start: 20200528
  16. RISPERDAL [Concomitant]
     Active Substance: RISPERIDONE
     Dates: start: 20200524
  17. URSODIOL. [Concomitant]
     Active Substance: URSODIOL
     Dates: start: 20200525
  18. ZOSYN [Concomitant]
     Active Substance: PIPERACILLIN SODIUM\TAZOBACTAM SODIUM
     Dates: start: 20200520
  19. NEURONTIN [Concomitant]
     Active Substance: GABAPENTIN
     Dates: start: 20200525

REACTIONS (17)
  - Tachycardia [None]
  - Pyrexia [None]
  - Wound [None]
  - Spinal cord compression [None]
  - Delirium [None]
  - C-reactive protein increased [None]
  - Cholelithiasis [None]
  - Neurotoxicity [None]
  - Muscle twitching [None]
  - Pain [None]
  - Hyperhidrosis [None]
  - Chills [None]
  - Melaena [None]
  - Tachypnoea [None]
  - Splenic lesion [None]
  - Cerebrovascular accident [None]
  - Cardio-respiratory arrest [None]

NARRATIVE: CASE EVENT DATE: 20200609
